FAERS Safety Report 8986246 (Version 1)
Quarter: 2012Q4

REPORT INFORMATION
  Report Type: Report from Study
  Country: US (occurrence: US)
  Receive Date: 20121226
  Receipt Date: 20121226
  Transmission Date: 20130627
  Serious: Yes (Other)
  Sender: FDA-Public Use
  Company Number: US-ROCHE-GNE266675

PATIENT
  Age: 49 Year
  Sex: Male

DRUGS (15)
  1. OMALIZUMAB [Suspect]
     Indication: ASTHMA
     Route: 058
     Dates: start: 20080411
  2. OMALIZUMAB [Suspect]
     Route: 065
     Dates: start: 20080703
  3. XOPENEX HFA [Concomitant]
     Indication: PRODUCT USED FOR UNKNOWN INDICATION
     Dosage: 45 ?g/hr, prn
     Route: 055
  4. ASMANEX [Concomitant]
     Indication: PRODUCT USED FOR UNKNOWN INDICATION
     Dosage: 220 ?g/hr, qd
     Route: 055
  5. ACCOLATE [Concomitant]
     Indication: PRODUCT USED FOR UNKNOWN INDICATION
     Dosage: 20 mg, bid
     Route: 048
  6. PULMICORT [Concomitant]
     Indication: PRODUCT USED FOR UNKNOWN INDICATION
     Dosage: 0.5 mg, UNK
     Route: 065
  7. IPRATROPIUM [Concomitant]
     Indication: PRODUCT USED FOR UNKNOWN INDICATION
     Dosage: 0.02 mg, UNK
     Route: 065
  8. XOPENEX [Concomitant]
     Indication: PRODUCT USED FOR UNKNOWN INDICATION
  9. FEXOFENADINE [Concomitant]
     Route: 065
  10. NEXIUM [Concomitant]
     Route: 065
  11. TRAZODONE [Concomitant]
     Route: 065
  12. EPIPEN [Concomitant]
     Route: 065
  13. SALINEX NASAL SPRAY [Concomitant]
     Route: 065
  14. IBUPROFEN [Concomitant]
     Route: 065
  15. QUININE SULFATE [Concomitant]
     Route: 065

REACTIONS (2)
  - Infectious mononucleosis [Unknown]
  - Influenza like illness [Unknown]
